FAERS Safety Report 6582045-9 (Version None)
Quarter: 2010Q1

REPORT INFORMATION
  Report Type: 
  Country: None (occurrence: None)
  Receive Date: 20100215
  Receipt Date: 20100209
  Transmission Date: 20100710
  Serious: Yes (Other)
  Sender: FDA-Public Use
  Company Number: US-AMGEN-QUU391545

PATIENT
  Sex: Male

DRUGS (10)
  1. NPLATE [Suspect]
     Indication: IDIOPATHIC THROMBOCYTOPENIC PURPURA
     Dates: start: 20091125
  2. PREDNISONE [Concomitant]
  3. PROGRAF [Concomitant]
  4. NEXIUM [Concomitant]
  5. DAPSONE [Concomitant]
  6. PENICILLIN NOS [Concomitant]
  7. VALTREX [Concomitant]
  8. MULTIPLE VITAMINS [Concomitant]
  9. FOLIC ACID [Concomitant]
  10. MAGNESIUM [Concomitant]

REACTIONS (1)
  - PLATELET COUNT DECREASED [None]
